FAERS Safety Report 19151208 (Version 2)
Quarter: 2021Q2

REPORT INFORMATION
  Report Type: Spontaneous
  Country: JP (occurrence: JP)
  Receive Date: 20210419
  Receipt Date: 20210510
  Transmission Date: 20210717
  Serious: Yes (Death)
  Sender: FDA-Public Use
  Company Number: JP-UCBSA-2021017160

PATIENT
  Age: 57 Year
  Sex: Male

DRUGS (3)
  1. PREDONINE [Concomitant]
     Active Substance: PREDNISOLONE
     Indication: PULMONARY FIBROSIS
     Dosage: 50 MILLIGRAM
     Route: 048
     Dates: start: 202012
  2. PREDONINE [Concomitant]
     Active Substance: PREDNISOLONE
     Indication: EMPHYSEMA
  3. CIMZIA [Suspect]
     Active Substance: CERTOLIZUMAB PEGOL
     Indication: RHEUMATOID ARTHRITIS
     Dosage: 200 MILLIGRAM, EV 2 WEEKS(QOW)
     Route: 058
     Dates: start: 202008

REACTIONS (4)
  - Death [Fatal]
  - Emphysema [Unknown]
  - Idiopathic pulmonary fibrosis [Unknown]
  - Pyrexia [Unknown]

NARRATIVE: CASE EVENT DATE: 202009
